FAERS Safety Report 6567885-4 (Version None)
Quarter: 2010Q1

REPORT INFORMATION
  Report Type: 
  Country: None (occurrence: None)
  Receive Date: 20100203
  Receipt Date: 20100125
  Transmission Date: 20100710
  Serious: Yes (Hospitalization)
  Sender: FDA-Public Use
  Company Number: PHHY2008AU07609

PATIENT
  Sex: Male

DRUGS (2)
  1. CLOZARIL [Suspect]
     Indication: SCHIZOPHRENIA
     Dosage: 800MG
     Dates: start: 20050713
  2. VALPROATE SODIUM [Concomitant]

REACTIONS (2)
  - CONVULSION [None]
  - DEHYDRATION [None]
